FAERS Safety Report 9292574 (Version 1)
Quarter: 2013Q2

REPORT INFORMATION
  Report Type: Spontaneous
  Country: BR (occurrence: BR)
  Receive Date: 20130516
  Receipt Date: 20130516
  Transmission Date: 20140414
  Serious: Yes (Other)
  Sender: FDA-Public Use
  Company Number: BR-PFIZER INC-2013145106

PATIENT
  Age: 65 Year
  Sex: Female
  Weight: 72 kg

DRUGS (3)
  1. DETRUSITOL LA [Suspect]
     Indication: URINARY INCONTINENCE
     Dosage: 4 MG, 2X/DAY
     Route: 048
     Dates: start: 1996, end: 1997
  2. DETRUSITOL LA [Suspect]
     Dosage: 4 MG, 2X/DAY
     Route: 048
     Dates: start: 2010
  3. MAREVAN [Concomitant]
     Dosage: HALF TABLET (UNSPECIFIED DOSE) A DAY
     Dates: start: 2011

REACTIONS (4)
  - Breast cancer [Unknown]
  - Thrombosis [Unknown]
  - Neoplasm [Unknown]
  - Epigastric discomfort [Unknown]
